FAERS Safety Report 22006732 (Version 2)
Quarter: 2023Q2

REPORT INFORMATION
  Report Type: Spontaneous
  Country: US (occurrence: US)
  Receive Date: 20230217
  Receipt Date: 20230426
  Transmission Date: 20230722
  Serious: No
  Sender: FDA-Public Use
  Company Number: US-ELI_LILLY_AND_COMPANY-US202302004176

PATIENT
  Age: 55 Year
  Sex: Female
  Weight: 180 kg

DRUGS (1)
  1. TALTZ [Suspect]
     Active Substance: IXEKIZUMAB
     Indication: Psoriasis
     Dosage: 80 MG, OTHER (EVERY OTHER WEEK)
     Route: 058
     Dates: start: 20221210, end: 20230117

REACTIONS (3)
  - Drug hypersensitivity [Recovered/Resolved]
  - Injection site erythema [Recovering/Resolving]
  - Injection site swelling [Unknown]

NARRATIVE: CASE EVENT DATE: 20230204
